FAERS Safety Report 5566556-0 (Version None)
Quarter: 2007Q4

REPORT INFORMATION
  Report Type: 
  Country: None (occurrence: None)
  Receive Date: 20071214
  Receipt Date: 20071206
  Transmission Date: 20080405
  Serious: Yes (Other)
  Sender: FDA-Public Use
  Company Number: 021434

PATIENT
  Age: 62 Year
  Sex: Male
  Weight: 80.7 kg

DRUGS (4)
  1. AMIODARONE HCL [Suspect]
     Indication: ATRIAL FIBRILLATION
     Dosage: 200 MG, QD, ORAL
     Route: 048
     Dates: start: 19970101
  2. ALTACE [Concomitant]
  3. VYTORIN [Concomitant]
  4. WARFARIN SODIUM [Concomitant]

REACTIONS (2)
  - AMNESIA [None]
  - CONDITION AGGRAVATED [None]
